FAERS Safety Report 25509996 (Version 1)
Quarter: 2025Q3

REPORT INFORMATION
  Report Type: Spontaneous
  Country: US (occurrence: None)
  Receive Date: 20250702
  Receipt Date: 20250702
  Transmission Date: 20251021
  Serious: Yes (Other)
  Sender: FDA-CTU
  Company Number: None

PATIENT
  Age: 6 Year
  Sex: Male
  Weight: 16.9 kg

DRUGS (2)
  1. TADALAFIL [Suspect]
     Active Substance: TADALAFIL
     Route: 048
     Dates: start: 20250623, end: 20250624
  2. GAMUNEX-C [Suspect]
     Active Substance: HUMAN IMMUNOGLOBULIN G
     Route: 042
     Dates: start: 20190807, end: 20250623

REACTIONS (7)
  - Stridor [None]
  - Infusion related reaction [None]
  - Agitation [None]
  - Angioedema [None]
  - Anaphylactic reaction [None]
  - Dysphagia [None]
  - Dysphonia [None]

NARRATIVE: CASE EVENT DATE: 20250623
